FAERS Safety Report 18512012 (Version 1)
Quarter: 2020Q4

REPORT INFORMATION
  Report Type: Spontaneous
  Country: US (occurrence: US)
  Receive Date: 20201117
  Receipt Date: 20201117
  Transmission Date: 20210114
  Serious: Yes (Disabling, Other)
  Sender: FDA-Public Use
  Company Number: US-PURDUE-USA-2020-0164886

PATIENT
  Sex: Female
  Weight: 93.88 kg

DRUGS (16)
  1. HYDROCODONE BITARTRATE AND ACETAMINOPHEN [Suspect]
     Active Substance: ACETAMINOPHEN\HYDROCODONE BITARTRATE
     Indication: PRODUCT USED FOR UNKNOWN INDICATION
     Dosage: UNK
     Route: 048
  2. BUTRANS [Suspect]
     Active Substance: BUPRENORPHINE
     Dosage: 15 MCG,ONE PATCH EVERY 7 DAYS
     Route: 062
  3. SOMA [Suspect]
     Active Substance: CARISOPRODOL
     Indication: PRODUCT USED FOR UNKNOWN INDICATION
     Dosage: UNK
     Route: 065
  4. PROMETHAZINE [Concomitant]
     Active Substance: PROMETHAZINE HYDROCHLORIDE
     Indication: PRODUCT USED FOR UNKNOWN INDICATION
     Dosage: UNK
     Route: 065
  5. AMLODIPINE [Concomitant]
     Active Substance: AMLODIPINE BESYLATE
     Indication: PRODUCT USED FOR UNKNOWN INDICATION
     Dosage: UNK
     Route: 065
  6. OXYCODONE HYDROCHLORIDE (SIMILAR TO NDA 22-272) [Suspect]
     Active Substance: OXYCODONE HYDROCHLORIDE
     Dosage: 30 MG, QID
     Route: 048
  7. BUTRANS [Suspect]
     Active Substance: BUPRENORPHINE
     Indication: PRODUCT USED FOR UNKNOWN INDICATION
     Dosage: 10 MCG, ONE PATCH EVERY 7 DAYS
     Route: 062
  8. OXYMORPHONE [Suspect]
     Active Substance: OXYMORPHONE
     Indication: PRODUCT USED FOR UNKNOWN INDICATION
     Dosage: UNK
     Route: 065
  9. FLEXERIL [Concomitant]
     Active Substance: CYCLOBENZAPRINE HYDROCHLORIDE
     Indication: PRODUCT USED FOR UNKNOWN INDICATION
     Dosage: 10 MG, TID
     Route: 048
  10. NEUROTIN                           /00949202/ [Concomitant]
     Active Substance: LEVACECARNINE HYDROCHLORIDE
     Indication: PRODUCT USED FOR UNKNOWN INDICATION
     Dosage: 10 MG, QD PRN
     Route: 048
  11. OXYCODONE HYDROCHLORIDE (SIMILAR TO NDA 22-272) [Suspect]
     Active Substance: OXYCODONE HYDROCHLORIDE
     Indication: PRODUCT USED FOR UNKNOWN INDICATION
     Dosage: 30 MG, TID
     Route: 048
  12. OXYCODONE HYDROCHLORIDE (SIMILAR TO NDA 22-272) [Suspect]
     Active Substance: OXYCODONE HYDROCHLORIDE
     Dosage: 30 MG, BID
     Route: 048
  13. LIDOCAINE. [Concomitant]
     Active Substance: LIDOCAINE
     Indication: PRODUCT USED FOR UNKNOWN INDICATION
     Dosage: 5 %,12TH HOURLY PRN
     Route: 065
  14. OXYCODONE HCL TABLETS (RHODES 91-490) [Suspect]
     Active Substance: OXYCODONE HYDROCHLORIDE
     Indication: PRODUCT USED FOR UNKNOWN INDICATION
     Dosage: UNK
     Route: 048
  15. IBUPROFEN. [Concomitant]
     Active Substance: IBUPROFEN
     Indication: PRODUCT USED FOR UNKNOWN INDICATION
     Dosage: 800 MG, TID
     Route: 048
  16. METHADONE [Suspect]
     Active Substance: METHADONE HYDROCHLORIDE
     Indication: PRODUCT USED FOR UNKNOWN INDICATION
     Dosage: UNK
     Route: 065

REACTIONS (19)
  - Disability [Unknown]
  - Learning disability [Unknown]
  - Constipation [Unknown]
  - Road traffic accident [Unknown]
  - Cyclothymic disorder [Unknown]
  - Sciatica [Unknown]
  - Developmental delay [Unknown]
  - Mental impairment [Unknown]
  - Neck pain [Unknown]
  - Hypertension [Unknown]
  - Cognitive disorder [Unknown]
  - Sedation [Unknown]
  - Spinal osteoarthritis [Unknown]
  - Pain [Unknown]
  - Arthralgia [Unknown]
  - Drug dependence [Unknown]
  - Fibromyalgia [Unknown]
  - Muscle spasms [Unknown]
  - Amnesia [Unknown]
